FAERS Safety Report 15499054 (Version 1)
Quarter: 2018Q4

REPORT INFORMATION
  Report Type: Spontaneous
  Country: FR (occurrence: FR)
  Receive Date: 20181015
  Receipt Date: 20181015
  Transmission Date: 20190205
  Serious: Yes (Other)
  Sender: FDA-Public Use
  Company Number: FR-JNJFOC-20181010189

PATIENT
  Age: 30 Year
  Sex: Male
  Weight: 94 kg

DRUGS (1)
  1. INFLIXIMAB, RECOMBINANT [Suspect]
     Active Substance: INFLIXIMAB
     Indication: ANKYLOSING SPONDYLITIS
     Route: 042
     Dates: start: 201606, end: 20170911

REACTIONS (1)
  - Oligoasthenoteratozoospermia [Not Recovered/Not Resolved]

NARRATIVE: CASE EVENT DATE: 20170825
